FAERS Safety Report 20139552 (Version 1)
Quarter: 2021Q4

REPORT INFORMATION
  Report Type: Spontaneous
  Country: ES (occurrence: ES)
  Receive Date: 20211202
  Receipt Date: 20211202
  Transmission Date: 20220303
  Serious: Yes (Hospitalization)
  Sender: FDA-Public Use
  Company Number: None

PATIENT
  Age: 3 Year
  Sex: Male
  Weight: 13.4 kg

DRUGS (5)
  1. METHYLPREDNISOLONE SODIUM SUCCINATE [Suspect]
     Active Substance: METHYLPREDNISOLONE SODIUM SUCCINATE
     Indication: Leukaemia
     Dosage: 19 MG, 2X/DAY (FREQ:12 H)
     Route: 042
     Dates: start: 20210727, end: 20210814
  2. AMPHOTERICIN B [Suspect]
     Active Substance: AMPHOTERICIN B
     Indication: Prophylaxis
     Dosage: 33 MG, 1X/DAY
     Route: 042
     Dates: start: 20210727, end: 20210814
  3. SULFAMETHOXAZOLE AND TRIMETHOPRIM [Suspect]
     Active Substance: SULFAMETHOXAZOLE\TRIMETHOPRIM
     Indication: Prophylaxis
     Dosage: 70 MG, 1X/DAY
     Route: 048
     Dates: start: 20210727, end: 20210730
  4. CYCLOPHOSPHAMIDE [Suspect]
     Active Substance: CYCLOPHOSPHAMIDE
     Indication: Leukaemia
     Dosage: 182 MG, 1X/DAY
     Route: 042
     Dates: start: 20210728, end: 20210728
  5. VINCRISTINE SULFATE [Concomitant]
     Active Substance: VINCRISTINE SULFATE
     Indication: Leukaemia
     Dosage: 0.6 MG, 1X/DAY
     Route: 042
     Dates: start: 20210728, end: 20210728

REACTIONS (2)
  - Hyperbilirubinaemia [Recovered/Resolved]
  - Hepatic cytolysis [Recovered/Resolved]

NARRATIVE: CASE EVENT DATE: 20210729
